FAERS Safety Report 4724044-5 (Version None)
Quarter: 2005Q3

REPORT INFORMATION
  Report Type: 
  Country: None (occurrence: None)
  Receive Date: 20050722
  Receipt Date: 20050713
  Transmission Date: 20060218
  Serious: Yes (Hospitalization)
  Sender: FDA-Public Use
  Company Number: DE-2005-013858

PATIENT
  Age: 65 Year
  Sex: Female

DRUGS (1)
  1. MAGNEVIST [Suspect]
     Dosage: 40 ML 1 DOSE, INTRAVENOUS
     Route: 042
     Dates: start: 20030101, end: 20030101

REACTIONS (1)
  - SEPSIS [None]
